FAERS Safety Report 9765782 (Version 1)
Quarter: 2013Q4

REPORT INFORMATION
  Report Type: Spontaneous
  Country: US (occurrence: US)
  Receive Date: 20131217
  Receipt Date: 20131217
  Transmission Date: 20140711
  Serious: No
  Sender: FDA-Public Use
  Company Number: US-BIOGENIDEC-2013BI111299

PATIENT
  Sex: Female

DRUGS (5)
  1. TECFIDERA [Suspect]
     Indication: MULTIPLE SCLEROSIS
     Route: 048
     Dates: start: 201305, end: 201305
  2. PRAVASTATIN [Concomitant]
     Indication: BLOOD CHOLESTEROL INCREASED
     Dates: start: 201012, end: 201012
  3. METAMUCIL [Concomitant]
     Indication: GAIT DISTURBANCE
     Dates: start: 2013
  4. METAMUCIL [Concomitant]
     Indication: ARTHRALGIA
     Dates: start: 2013
  5. PROZAC [Concomitant]
     Indication: DEPRESSION

REACTIONS (4)
  - Depressed mood [Unknown]
  - Depression [Unknown]
  - Diarrhoea [Unknown]
  - Memory impairment [Not Recovered/Not Resolved]
